FAERS Safety Report 23299952 (Version 1)
Quarter: 2023Q4

REPORT INFORMATION
  Report Type: Spontaneous
  Country: JP (occurrence: JP)
  Receive Date: 20231215
  Receipt Date: 20231215
  Transmission Date: 20240109
  Serious: Yes (Hospitalization)
  Sender: FDA-Public Use
  Company Number: JP-ZAMBON-202304784COR

PATIENT
  Sex: Female

DRUGS (1)
  1. SAFINAMIDE [Suspect]
     Active Substance: SAFINAMIDE
     Indication: Product used for unknown indication
     Dosage: NOT PROVIDED
     Route: 048

REACTIONS (1)
  - Fracture [Unknown]
